FAERS Safety Report 9448946 (Version 1)
Quarter: 2013Q3

REPORT INFORMATION
  Report Type: Spontaneous
  Country: US (occurrence: US)
  Receive Date: 20130808
  Receipt Date: 20130808
  Transmission Date: 20140515
  Serious: Yes (Hospitalization)
  Sender: FDA-Public Use
  Company Number: US-B.I. PHARMACEUTICALS,INC./RIDGEFIELD-2013-BI-23518BP

PATIENT
  Age: 72 Year
  Sex: Female

DRUGS (5)
  1. PRADAXA [Suspect]
     Indication: ATRIAL FIBRILLATION
     Dosage: 300 MG
     Route: 048
     Dates: start: 2012
  2. SYNTHROID [Concomitant]
     Indication: THYROID FUNCTION TEST ABNORMAL
     Dosage: 0.75 MCG
     Route: 048
  3. PROTONIX [Concomitant]
     Indication: GASTROOESOPHAGEAL REFLUX DISEASE
     Route: 048
     Dates: start: 201212
  4. ALTACE [Concomitant]
     Indication: HYPERTENSION
     Dosage: 10 MG
     Route: 048
  5. ASPIRIN [Concomitant]
     Indication: ARRHYTHMIA
     Dosage: 81 MG
     Route: 048

REACTIONS (5)
  - Abdominal pain upper [Recovered/Resolved]
  - Diarrhoea [Not Recovered/Not Resolved]
  - Renal pain [Not Recovered/Not Resolved]
  - Epistaxis [Not Recovered/Not Resolved]
  - Accidental overdose [Recovered/Resolved]
